FAERS Safety Report 9517856 (Version 1)
Quarter: 2013Q3

REPORT INFORMATION
  Report Type: Spontaneous
  Country: GB (occurrence: GB)
  Receive Date: 20130912
  Receipt Date: 20130912
  Transmission Date: 20140515
  Serious: Yes (Other)
  Sender: FDA-Public Use
  Company Number: GB-MERCK-1309GBR003249

PATIENT
  Age: 71 Year
  Sex: Female
  Weight: 99 kg

DRUGS (6)
  1. EZETIMIBE [Suspect]
     Indication: BLOOD CHOLESTEROL INCREASED
     Dosage: 10 MG, QD
     Route: 048
     Dates: start: 20130725, end: 20130812
  2. AMLODIPINE [Concomitant]
     Indication: HYPERTENSION
     Dosage: 5 MG, QD
     Dates: start: 2010
  3. BENDROFLUMETHIAZIDE [Concomitant]
     Indication: HYPERTENSION
     Dosage: 2.5 MG, QD
     Dates: start: 2005
  4. ACETAMINOPHEN (+) CODEINE PHOSPHATE [Concomitant]
     Indication: PAIN
     Dosage: UNK, PRN
     Dates: start: 2010
  5. LEVOTHYROXINE SODIUM [Concomitant]
     Indication: HYPOTHYROIDISM
     Dosage: 75 MICROGRAM, QD
     Route: 048
     Dates: start: 2005
  6. LOSARTAN POTASSIUM [Concomitant]
     Indication: HYPERTENSION
     Dosage: 50 MG, QD
     Route: 048
     Dates: start: 201203

REACTIONS (2)
  - Dyspnoea [Recovering/Resolving]
  - Arthralgia [Recovering/Resolving]
